FAERS Safety Report 10194712 (Version 1)
Quarter: 2014Q2

REPORT INFORMATION
  Report Type: Spontaneous
  Country: US (occurrence: US)
  Receive Date: 20140526
  Receipt Date: 20140526
  Transmission Date: 20141212
  Serious: Yes (Hospitalization, Other)
  Sender: FDA-Public Use
  Company Number: US-009507513-1405USA010320

PATIENT
  Sex: Male

DRUGS (1)
  1. NOROXIN [Suspect]
     Indication: PORTAL HYPERTENSION
     Route: 048

REACTIONS (3)
  - Hepatic encephalopathy [Unknown]
  - Drug prescribing error [Unknown]
  - Drug dose omission [Unknown]
